FAERS Safety Report 10029856 (Version 1)
Quarter: 2014Q1

REPORT INFORMATION
  Report Type: Spontaneous
  Country: US (occurrence: None)
  Receive Date: 20140320
  Receipt Date: 20140320
  Transmission Date: 20141002
  Serious: Yes (Other)
  Sender: FDA-Public Use
  Company Number: NXG-14-002

PATIENT
  Sex: Female

DRUGS (1)
  1. FIORICET [Suspect]
     Indication: MIGRAINE

REACTIONS (4)
  - Drug ineffective [None]
  - Dysphagia [None]
  - Agitation [None]
  - Sleep disorder [None]
